FAERS Safety Report 4357481-1 (Version None)
Quarter: 2004Q2

REPORT INFORMATION
  Report Type: 
  Country: None (occurrence: None)
  Receive Date: 20040511
  Receipt Date: 20040511
  Transmission Date: 20050107
  Serious: Yes (Hospitalization)
  Sender: FDA-Public Use
  Company Number: None

PATIENT
  Age: 51 Year
  Sex: Male
  Weight: 110 kg

DRUGS (8)
  1. CLOZAPINE [Suspect]
     Indication: BIPOLAR DISORDER
     Dosage: NARRATIVE
     Dates: start: 20040121, end: 20040210
  2. CLOZAPINE [Suspect]
     Indication: MANIA
     Dosage: NARRATIVE
     Dates: start: 20040121, end: 20040210
  3. LIPITOR [Concomitant]
  4. VASOTEC [Concomitant]
  5. SYNTHROID [Concomitant]
  6. OSCAL WITH D [Concomitant]
  7. SENOKOT [Concomitant]
  8. ZYPREXA [Concomitant]

REACTIONS (3)
  - PYREXIA [None]
  - VOMITING [None]
  - WHITE BLOOD CELL COUNT INCREASED [None]
